FAERS Safety Report 18388614 (Version 1)
Quarter: 2020Q4

REPORT INFORMATION
  Report Type: Report from Study
  Country: US (occurrence: US)
  Receive Date: 20201015
  Receipt Date: 20201015
  Transmission Date: 20210114
  Serious: Yes (Other)
  Sender: FDA-Public Use
  Company Number: US-MYLANLABS-2020M1086380

PATIENT
  Sex: Female
  Weight: 70 kg

DRUGS (1)
  1. GLATIRAMER ACETATE INJECTION [Suspect]
     Active Substance: GLATIRAMER ACETATE
     Indication: RELAPSING-REMITTING MULTIPLE SCLEROSIS
     Dosage: 40 MILLIGRAM, 3XW
     Route: 058

REACTIONS (9)
  - Renal disorder [Unknown]
  - Seizure [Unknown]
  - General physical health deterioration [Unknown]
  - Chills [Unknown]
  - Muscle tightness [Unknown]
  - Fatigue [Unknown]
  - Chest discomfort [Unknown]
  - Migraine [Unknown]
  - Feeling cold [Unknown]
